FAERS Safety Report 18468464 (Version 1)
Quarter: 2020Q4

REPORT INFORMATION
  Report Type: Spontaneous
  Country: US (occurrence: US)
  Receive Date: 20201104
  Receipt Date: 20201104
  Transmission Date: 20210114
  Serious: No
  Sender: FDA-Public Use
  Company Number: None

PATIENT
  Age: 48 Year
  Sex: Male

DRUGS (1)
  1. PACLITAXEL (PACLITAXEL , 300MG/50ML INJ, VIL, 50ML) [Suspect]
     Active Substance: PACLITAXEL
     Indication: BREAST CANCER
     Dates: start: 20200801, end: 20200819

REACTIONS (2)
  - Urticaria [None]
  - Pruritus [None]

NARRATIVE: CASE EVENT DATE: 20200821
